FAERS Safety Report 4795369-2 (Version None)
Quarter: 2005Q4

REPORT INFORMATION
  Report Type: 
  Country: None (occurrence: None)
  Receive Date: 20051007
  Receipt Date: 20051007
  Transmission Date: 20060501
  Serious: Yes (Hospitalization)
  Sender: FDA-Public Use
  Company Number: None

PATIENT
  Age: 50 Year
  Sex: Male
  Weight: 89 kg

DRUGS (14)
  1. CAMPATH [Suspect]
     Indication: IMMUNOSUPPRESSION
     Dosage: 30 MG IV DRIP
     Route: 041
     Dates: start: 20050617, end: 20050706
  2. CELLCEPT [Concomitant]
  3. PROGRAF [Concomitant]
  4. VALCYTE [Concomitant]
  5. DAPSONE [Concomitant]
  6. BACTRIM [Concomitant]
  7. CIPRO [Concomitant]
  8. PRILOSEC [Concomitant]
  9. MYCELEX [Concomitant]
  10. MAGNESIUM OXIDE [Concomitant]
  11. CALCIUM CARBONATE [Concomitant]
  12. LEVOTHYROXINE [Concomitant]
  13. ASPIRIN [Concomitant]
  14. COLACE [Concomitant]

REACTIONS (3)
  - KIDNEY TRANSPLANT REJECTION [None]
  - LEUKOPENIA [None]
  - WEST NILE VIRAL INFECTION [None]
